FAERS Safety Report 9226384 (Version 1)
Quarter: 2013Q2

REPORT INFORMATION
  Report Type: Spontaneous
  Country: US (occurrence: US)
  Receive Date: 20130411
  Receipt Date: 20130411
  Transmission Date: 20140414
  Serious: Yes (Hospitalization)
  Sender: FDA-Public Use
  Company Number: US-B.I. PHARMACEUTICALS,INC./RIDGEFIELD-2013-BI-09315BP

PATIENT
  Age: 70 Year
  Sex: Female

DRUGS (3)
  1. DULCOLAX TABLETS [Suspect]
  2. GATOR AID [Suspect]
     Indication: BOWEL PREPARATION
  3. MIRALAX [Suspect]
     Indication: BOWEL PREPARATION

REACTIONS (4)
  - Vomiting projectile [Unknown]
  - Flatulence [Unknown]
  - Ill-defined disorder [Unknown]
  - Apparent death [None]
